FAERS Safety Report 24329427 (Version 4)
Quarter: 2025Q1

REPORT INFORMATION
  Report Type: Report from Study
  Country: US (occurrence: US)
  Receive Date: 20240917
  Receipt Date: 20250330
  Transmission Date: 20250409
  Serious: Yes (Hospitalization)
  Sender: NOVARTIS
  Company Number: US-002147023-NVSC2024US184296

PATIENT
  Sex: Female

DRUGS (1)
  1. KESIMPTA [Suspect]
     Active Substance: OFATUMUMAB
     Indication: Product used for unknown indication
     Route: 065
     Dates: start: 20240301

REACTIONS (8)
  - Migraine [Unknown]
  - Fatigue [Unknown]
  - Clumsiness [Unknown]
  - Ill-defined disorder [Unknown]
  - Fall [Unknown]
  - Limb discomfort [Unknown]
  - Panic attack [Unknown]
  - Mental disorder [Unknown]
